FAERS Safety Report 17771153 (Version 1)
Quarter: 2020Q2

REPORT INFORMATION
  Report Type: Spontaneous
  Country: US (occurrence: US)
  Receive Date: 20200512
  Receipt Date: 20200512
  Transmission Date: 20200714
  Serious: Yes (Other)
  Sender: FDA-Public Use
  Company Number: US-ABBVIE-20K-163-3396497-00

PATIENT
  Sex: Female

DRUGS (3)
  1. OBINUTUZUMAB. [Concomitant]
     Active Substance: OBINUTUZUMAB
     Indication: CHRONIC LYMPHOCYTIC LEUKAEMIA
  2. IMBRUVICA [Concomitant]
     Active Substance: IBRUTINIB
     Indication: CHRONIC LYMPHOCYTIC LEUKAEMIA
  3. VENCLEXTA [Suspect]
     Active Substance: VENETOCLAX
     Indication: CHRONIC LYMPHOCYTIC LEUKAEMIA
     Route: 048

REACTIONS (13)
  - Pelvic inflammatory disease [Unknown]
  - Panniculitis [Unknown]
  - Erythema infectiosum [Unknown]
  - Joint swelling [Unknown]
  - Nerve injury [Unknown]
  - Pancreatitis [Unknown]
  - Pain [Unknown]
  - Diarrhoea [Unknown]
  - Menorrhagia [Unknown]
  - Anaemia [Unknown]
  - Infection [Unknown]
  - Cystitis [Unknown]
  - Colitis [Unknown]
